FAERS Safety Report 17532588 (Version 1)
Quarter: 2020Q1

REPORT INFORMATION
  Report Type: Spontaneous
  Country: US (occurrence: US)
  Receive Date: 20200304
  Receipt Date: 20200304
  Transmission Date: 20200409
  Serious: No
  Sender: FDA-Public Use
  Company Number: None

PATIENT
  Age: 44 Year
  Sex: Female
  Weight: 168.74 kg

DRUGS (2)
  1. AUGMENTIN [Suspect]
     Active Substance: AMOXICILLIN\CLAVULANATE POTASSIUM
  2. AFRIN [Suspect]
     Active Substance: OXYMETAZOLINE

REACTIONS (8)
  - Hyperhidrosis [None]
  - Nausea [None]
  - Rash [None]
  - Peripheral swelling [None]
  - Throat tightness [None]
  - Abdominal pain [None]
  - Sinusitis bacterial [None]
  - Dyspnoea [None]
